FAERS Safety Report 9552358 (Version 1)
Quarter: 2013Q3

REPORT INFORMATION
  Report Type: Spontaneous
  Country: GR (occurrence: GR)
  Receive Date: 20130925
  Receipt Date: 20130925
  Transmission Date: 20140515
  Serious: Yes (Hospitalization, Other)
  Sender: FDA-Public Use
  Company Number: GR-ASTELLAS-2013US010013

PATIENT
  Age: 50 Year
  Sex: Male

DRUGS (4)
  1. TARCEVA [Suspect]
     Indication: LUNG ADENOCARCINOMA
     Dosage: UNK
     Route: 065
  2. TARCEVA [Suspect]
     Indication: EGFR GENE MUTATION
  3. AVASTIN /01555201/ [Suspect]
     Indication: LUNG ADENOCARCINOMA
     Dosage: 50 MG/KG, UID/QD
     Route: 065
  4. AVASTIN /01555201/ [Suspect]
     Indication: EGFR GENE MUTATION

REACTIONS (2)
  - Abdominal pain [Recovered/Resolved]
  - Gastrointestinal perforation [Recovered/Resolved]
